FAERS Safety Report 9875146 (Version 1)
Quarter: 2014Q1

REPORT INFORMATION
  Report Type: Spontaneous
  Country: US (occurrence: None)
  Receive Date: 20140205
  Receipt Date: 20140205
  Transmission Date: 20141002
  Serious: Yes (Other)
  Sender: FDA-Public Use
  Company Number: None

PATIENT
  Age: 32 Year
  Sex: Female
  Weight: 64.41 kg

DRUGS (1)
  1. CYMBALTA [Suspect]
     Route: 048
     Dates: start: 20130902, end: 20140130

REACTIONS (10)
  - Mania [None]
  - Alcohol use [None]
  - Weight decreased [None]
  - Road traffic accident [None]
  - Paraesthesia [None]
  - Vomiting [None]
  - Diarrhoea [None]
  - Chills [None]
  - Hot flush [None]
  - Insomnia [None]
